FAERS Safety Report 7916961-X (Version None)
Quarter: 2011Q4

REPORT INFORMATION
  Report Type: 
  Country: None (occurrence: None)
  Receive Date: 20111116
  Receipt Date: 20111110
  Transmission Date: 20120403
  Serious: Yes (Life-Threatening, Hospitalization)
  Sender: FDA-Public Use
  Company Number: CN-ROXANE LABORATORIES, INC.-2011-RO-01623RO

PATIENT
  Age: 30 Month
  Sex: Male
  Weight: 14.5 kg

DRUGS (1)
  1. DIPHENOXYLATE HCL AND ATROPINE SULFATE [Suspect]
     Route: 048

REACTIONS (2)
  - TOXICITY TO VARIOUS AGENTS [None]
  - TOXIC ENCEPHALOPATHY [None]
